FAERS Safety Report 10077174 (Version 1)
Quarter: 2014Q2

REPORT INFORMATION
  Report Type: Spontaneous
  Country: IN (occurrence: IN)
  Receive Date: 20140414
  Receipt Date: 20140414
  Transmission Date: 20141212
  Serious: Yes (Death)
  Sender: FDA-Public Use
  Company Number: PHHY2014IN040975

PATIENT
  Age: 63 Year
  Sex: Female

DRUGS (4)
  1. DOCETAXEL [Suspect]
     Indication: OESOPHAGEAL CARCINOMA
     Route: 065
     Dates: start: 201209
  2. PACLITAXEL [Suspect]
     Indication: OESOPHAGEAL CARCINOMA
  3. CISPLATIN [Concomitant]
     Indication: OESOPHAGEAL CARCINOMA
     Dates: start: 201209, end: 201212
  4. 5 FLUORO URACIL [Concomitant]
     Indication: OESOPHAGEAL CARCINOMA
     Dates: start: 201209, end: 201212

REACTIONS (4)
  - Pneumonitis [Fatal]
  - Cough [Fatal]
  - Chest pain [Fatal]
  - Dyspnoea [Fatal]
